FAERS Safety Report 14757463 (Version 2)
Quarter: 2018Q2

REPORT INFORMATION
  Report Type: Spontaneous
  Country: ES (occurrence: ES)
  Receive Date: 20180413
  Receipt Date: 20180426
  Transmission Date: 20180711
  Serious: Yes (Death)
  Sender: FDA-Public Use
  Company Number: ES-AUROBINDO-AUR-APL-2018-019739

PATIENT
  Age: 21 Year
  Sex: Female

DRUGS (5)
  1. DEXAMETASONA [Interacting]
     Active Substance: DEXAMETHASONE
     Indication: 17-ALPHA-HYDROXYLASE DEFICIENCY
  2. CITALOPRAM [Suspect]
     Active Substance: CITALOPRAM HYDROBROMIDE
     Indication: DEPRESSION
     Dosage: 20 MILLIGRAM, ONCE A DAY
     Route: 048
     Dates: start: 20170626, end: 20180227
  3. DEXAMETASONA [Interacting]
     Active Substance: DEXAMETHASONE
     Indication: HYPERADRENALISM
     Dosage: 0.25 MILLIGRAM, ONCE A DAY
     Route: 048
     Dates: start: 2016, end: 20180227
  4. HIDROCORTISON [Concomitant]
     Active Substance: HYDROCORTISONE
     Indication: HYPERADRENALISM
     Dosage: 10 MILLIGRAM, ONCE A DAY
     Route: 048
     Dates: start: 20180227, end: 20180302
  5. TRAZODONA                          /00447701/ [Interacting]
     Active Substance: TRAZODONE HYDROCHLORIDE
     Indication: DEPRESSION
     Dosage: 100 MILLIGRAM, ONCE A DAY
     Route: 048
     Dates: start: 20170807, end: 20180227

REACTIONS (1)
  - Cushing^s syndrome [Fatal]

NARRATIVE: CASE EVENT DATE: 20180227
